FAERS Safety Report 10029146 (Version 3)
Quarter: 2014Q4

REPORT INFORMATION
  Report Type: Report from Study
  Country: GB (occurrence: GB)
  Receive Date: 20140321
  Receipt Date: 20141226
  Transmission Date: 20150528
  Serious: Yes (Death, Life-Threatening, Hospitalization, Other)
  Sender: FDA-Public Use
  Company Number: GB-BRISTOL-MYERS SQUIBB COMPANY-20028676

PATIENT
  Age: 65 Year
  Sex: Male

DRUGS (9)
  1. BLINDED CARBOPLATIN [Suspect]
     Active Substance: CARBOPLATIN
     Indication: NON-SMALL CELL LUNG CANCER
     Dosage: LAST DOSE 16DEC2013  1DF=880 MG
     Route: 042
     Dates: start: 20130909, end: 20131216
  2. PLACEBO [Suspect]
     Active Substance: UNSPECIFIED INGREDIENT
     Indication: NON-SMALL CELL LUNG CANCER
     Dosage: LAST DOSE 16DEC2013  1DF=880 MG
     Route: 042
     Dates: start: 20130909, end: 20131216
  3. BLINDED PACLITAXEL [Suspect]
     Active Substance: PACLITAXEL
     Indication: NON-SMALL CELL LUNG CANCER
     Dosage: LAST DOSE 16DEC2013  1DF=336MG
     Route: 042
     Dates: start: 20130909, end: 20131216
  4. BLINDED IPILIMUMAB [Suspect]
     Active Substance: IPILIMUMAB
     Indication: NON-SMALL CELL LUNG CANCER
     Dosage: LAST DOSE 16DEC2013  1DF=336MG
     Route: 042
     Dates: start: 20130909, end: 20131216
  5. PLACEBO [Suspect]
     Active Substance: UNSPECIFIED INGREDIENT
     Indication: NON-SMALL CELL LUNG CANCER
     Dosage: LAST DOSE 16DEC2013  1DF=336MG
     Route: 042
     Dates: start: 20130909, end: 20131216
  6. PLACEBO [Suspect]
     Active Substance: UNSPECIFIED INGREDIENT
     Indication: NON-SMALL CELL LUNG CANCER
     Dosage: LAST DOSE 18NOV2013
     Route: 042
     Dates: start: 20131028, end: 20131118
  7. DEXAMETHASONE. [Concomitant]
     Active Substance: DEXAMETHASONE
     Dosage: CONTINUE
     Dates: start: 20140104
  8. BLINDED IPILIMUMAB [Suspect]
     Active Substance: IPILIMUMAB
     Indication: NON-SMALL CELL LUNG CANCER
     Dosage: LAST DOSE 18NOV2013
     Route: 042
     Dates: start: 20131028, end: 20131118
  9. BLINDED IPILIMUMAB [Suspect]
     Active Substance: IPILIMUMAB
     Indication: NON-SMALL CELL LUNG CANCER
     Dosage: LAST DOSE 16DEC2013  1DF=880 MG
     Route: 042
     Dates: start: 20130909, end: 20131216

REACTIONS (6)
  - Endocrine disorder [Not Recovered/Not Resolved]
  - Metastatic neoplasm [Fatal]
  - Platelet count decreased [Not Recovered/Not Resolved]
  - Dermatitis [Not Recovered/Not Resolved]
  - Pneumonia [Not Recovered/Not Resolved]
  - Sepsis [Recovered/Resolved]

NARRATIVE: CASE EVENT DATE: 20140113
